FAERS Safety Report 17576391 (Version 3)
Quarter: 2020Q2

REPORT INFORMATION
  Report Type: Spontaneous
  Country: JP (occurrence: JP)
  Receive Date: 20200324
  Receipt Date: 20200418
  Transmission Date: 20200713
  Serious: Yes (Hospitalization, Other)
  Sender: FDA-Public Use
  Company Number: JP-ACCORD-177000

PATIENT
  Age: 6 Decade
  Sex: Female
  Weight: 48 kg

DRUGS (8)
  1. IRINOTECAN [Suspect]
     Active Substance: IRINOTECAN
     Indication: COLON CANCER
  2. FOLINIC ACID [Suspect]
     Active Substance: LEUCOVORIN
     Indication: COLON CANCER
  3. FUROSEMIDE. [Concomitant]
     Active Substance: FUROSEMIDE
  4. PREDNISOLONE. [Concomitant]
     Active Substance: PREDNISOLONE
  5. CANDESARTAN. [Concomitant]
     Active Substance: CANDESARTAN
     Dosage: ALSO RECEIVED 12 MG
  6. RAMUCIRUMAB [Suspect]
     Active Substance: RAMUCIRUMAB
     Indication: COLON CANCER
  7. FLUOROURACIL. [Suspect]
     Active Substance: FLUOROURACIL
     Indication: COLON CANCER
     Dosage: 300 MG/M2 INTRAVENOUS BOLUS
     Route: 041
  8. TRICHLORMETHIAZIDE [Concomitant]
     Active Substance: TRICHLORMETHIAZIDE

REACTIONS (4)
  - Gastrointestinal oedema [Recovering/Resolving]
  - Nephrotic syndrome [Recovering/Resolving]
  - Ascites [Recovering/Resolving]
  - Hypertension [Recovering/Resolving]
